FAERS Safety Report 13735309 (Version 12)
Quarter: 2018Q2

REPORT INFORMATION
  Report Type: Report from Study
  Country: AU (occurrence: AU)
  Receive Date: 20170710
  Receipt Date: 20180608
  Transmission Date: 20180711
  Serious: Yes (Disabling, Other)
  Sender: FDA-Public Use
  Company Number: PHHY2017AU100006

PATIENT
  Age: 29 Year
  Sex: Female

DRUGS (4)
  1. GILENYA [Suspect]
     Active Substance: FINGOLIMOD HYDROCHLORIDE
     Indication: RELAPSING-REMITTING MULTIPLE SCLEROSIS
     Dosage: 0.5 MG, QD
     Route: 048
     Dates: start: 20150804
  2. GILENYA [Suspect]
     Active Substance: FINGOLIMOD HYDROCHLORIDE
     Dosage: UNK
     Route: 048
     Dates: start: 20170705
  3. INFLUENZA [Suspect]
     Active Substance: INFLUENZA VIRUS VACCINE
     Indication: PRODUCT USED FOR UNKNOWN INDICATION
     Dosage: UNK
     Route: 065
  4. VITAMIN D [Concomitant]
     Active Substance: CHOLECALCIFEROL
     Indication: PRODUCT USED FOR UNKNOWN INDICATION
     Dosage: UNK
     Route: 065

REACTIONS (37)
  - Anxiety [Not Recovered/Not Resolved]
  - Fall [Recovered/Resolved]
  - Feeling abnormal [Not Recovered/Not Resolved]
  - Concomitant disease aggravated [Recovered/Resolved]
  - Sleep disorder [Recovering/Resolving]
  - Mobility decreased [Recovered/Resolved]
  - Asthenopia [Not Recovered/Not Resolved]
  - Lymphopenia [Recovering/Resolving]
  - Temperature intolerance [Unknown]
  - Muscular weakness [Unknown]
  - Fatigue [Recovering/Resolving]
  - White blood cell count decreased [Not Recovered/Not Resolved]
  - Sluggishness [Unknown]
  - Stubbornness [Unknown]
  - Stress [Not Recovered/Not Resolved]
  - Emotional disorder [Not Recovered/Not Resolved]
  - Optic neuritis [Recovered/Resolved]
  - Insomnia [Unknown]
  - Headache [Recovered/Resolved]
  - Hypoaesthesia [Not Recovered/Not Resolved]
  - Crying [Recovered/Resolved]
  - Asthenia [Recovering/Resolving]
  - Multiple sclerosis relapse [Recovered/Resolved]
  - Visual impairment [Recovered/Resolved]
  - Mental impairment [Unknown]
  - Visual field defect [Unknown]
  - Dysphagia [Not Recovered/Not Resolved]
  - Insomnia [Not Recovered/Not Resolved]
  - Eating disorder [Recovered/Resolved]
  - Feeling guilty [Not Recovered/Not Resolved]
  - Vision blurred [Not Recovered/Not Resolved]
  - Cognitive disorder [Unknown]
  - Body mass index increased [Unknown]
  - Mental fatigue [Unknown]
  - Sleep disorder [Recovered/Resolved]
  - Malaise [Recovering/Resolving]
  - Asthenia [Recovered/Resolved]

NARRATIVE: CASE EVENT DATE: 20170717
